FAERS Safety Report 17525667 (Version 1)
Quarter: 2020Q1

REPORT INFORMATION
  Report Type: Spontaneous
  Country: US (occurrence: US)
  Receive Date: 20200303
  Receipt Date: 20200303
  Transmission Date: 20200409
  Serious: Yes (Hospitalization)
  Sender: FDA-Public Use
  Company Number: None

PATIENT
  Age: 74 Year
  Sex: Male
  Weight: 99 kg

DRUGS (1)
  1. FUROSEMIDE (FUROSEMIDE 40MG TAB) [Suspect]
     Active Substance: FUROSEMIDE
     Indication: CARDIAC FAILURE CONGESTIVE
     Dosage: ?          OTHER DOSE:1 TAB;?
     Route: 048
     Dates: start: 20101220

REACTIONS (3)
  - Hypotension [None]
  - Polyuria [None]
  - Pancreatitis [None]

NARRATIVE: CASE EVENT DATE: 20191211
